FAERS Safety Report 9262476 (Version 1)
Quarter: 2013Q2

REPORT INFORMATION
  Report Type: Spontaneous
  Country: US (occurrence: US)
  Receive Date: 20130430
  Receipt Date: 20130430
  Transmission Date: 20140414
  Serious: No
  Sender: FDA-Public Use
  Company Number: US-ELI_LILLY_AND_COMPANY-US201304005274

PATIENT
  Age: 50 Year
  Sex: Female

DRUGS (7)
  1. CYMBALTA [Suspect]
     Indication: DEPRESSION
     Dosage: 30 MG, QD
     Dates: end: 201211
  2. CYMBALTA [Suspect]
     Dosage: 60 MG, QD
     Dates: start: 201301
  3. WELLBUTRIN [Concomitant]
     Dosage: UNK
     Dates: start: 201211, end: 201212
  4. LORATADINE [Concomitant]
     Dosage: .5 ML, BID
  5. PROGESTERONE [Concomitant]
     Dosage: 100 MG, UNK
  6. ESTROGEN NOS [Concomitant]
  7. TRAMADOL [Concomitant]
     Indication: ARTHRALGIA
     Dosage: 50 MG, PRN

REACTIONS (6)
  - Alanine aminotransferase increased [Unknown]
  - Gamma-glutamyltransferase increased [Unknown]
  - Drug ineffective [Unknown]
  - Depression [Not Recovered/Not Resolved]
  - Fibromyalgia [Not Recovered/Not Resolved]
  - Insomnia [Not Recovered/Not Resolved]
